FAERS Safety Report 25890522 (Version 1)
Quarter: 2025Q4

REPORT INFORMATION
  Report Type: Spontaneous
  Country: CA (occurrence: CA)
  Receive Date: 20251007
  Receipt Date: 20251007
  Transmission Date: 20260118
  Serious: Yes (Other)
  Sender: CELLTRION
  Company Number: CA-CELLTRION INC.-2024CA028843

PATIENT

DRUGS (6)
  1. STEQEYMA [Suspect]
     Active Substance: USTEKINUMAB-STBA
     Indication: Colitis ulcerative
     Dosage: 390 MG (THERAPY DURATION: INDEFINITE)
     Route: 042
     Dates: start: 20241113
  2. STEQEYMA [Suspect]
     Active Substance: USTEKINUMAB-STBA
     Indication: Colitis ulcerative
     Dosage: 90 MG Q 8 WEEKS
     Route: 058
     Dates: start: 20241113
  3. STEQEYMA [Suspect]
     Active Substance: USTEKINUMAB-STBA
     Dosage: 90 MG EVERY 8 WEEKS
     Route: 058
     Dates: start: 20241203
  4. STEQEYMA [Suspect]
     Active Substance: USTEKINUMAB-STBA
     Dosage: 90 MG EVERY 4 WEEKS
     Route: 058
  5. STEQEYMA [Suspect]
     Active Substance: USTEKINUMAB-STBA
     Dosage: 90 MG EVERY 4 WEEKS
     Route: 058
     Dates: start: 20230425
  6. PLAQUENIL [Suspect]
     Active Substance: HYDROXYCHLOROQUINE SULFATE
     Indication: Arthralgia

REACTIONS (5)
  - Haematochezia [Unknown]
  - Diarrhoea [Unknown]
  - Mucous stools [Unknown]
  - Abdominal pain [Unknown]
  - Intentional product use issue [Unknown]
